FAERS Safety Report 11515935 (Version 2)
Quarter: 2016Q2

REPORT INFORMATION
  Report Type: Spontaneous
  Country: US (occurrence: US)
  Receive Date: 20150916
  Receipt Date: 20160616
  Transmission Date: 20160815
  Serious: Yes (Disabling, Other)
  Sender: FDA-Public Use
  Company Number: US-BRISTOL-MYERS SQUIBB COMPANY-BMS-2015-060679

PATIENT
  Sex: Female

DRUGS (3)
  1. STELARA [Concomitant]
     Active Substance: USTEKINUMAB
     Indication: PSORIASIS
     Route: 065
  2. REMICADE [Concomitant]
     Active Substance: INFLIXIMAB
     Indication: PSORIASIS
     Route: 065
  3. ABILIFY [Suspect]
     Active Substance: ARIPIPRAZOLE
     Indication: DEPRESSION
     Dosage: 15 MG, QD
     Route: 048

REACTIONS (11)
  - Off label use [Unknown]
  - Wrong technique in product usage process [Unknown]
  - Weight increased [Unknown]
  - Fatigue [Unknown]
  - Knee arthroplasty [Unknown]
  - Underdose [Unknown]
  - Synovial cyst [Unknown]
  - Dizziness [Unknown]
  - Surgery [Unknown]
  - Calcinosis [Unknown]
  - Impaired gastric emptying [Unknown]
